FAERS Safety Report 17227899 (Version 18)
Quarter: 2022Q1

REPORT INFORMATION
  Report Type: Spontaneous
  Country: CA (occurrence: CA)
  Receive Date: 20200103
  Receipt Date: 20220324
  Transmission Date: 20220423
  Serious: Yes (Other)
  Sender: FDA-Public Use
  Company Number: CA-CELLTRION INC.-2019CA025123

PATIENT

DRUGS (20)
  1. INFLECTRA [Suspect]
     Active Substance: INFLIXIMAB-DYYB
     Indication: Crohn^s disease
     Dosage: 300 MG, Q (EVERY) 0, 2, WEEKS, THEN EVERY 8 WEEKS
     Route: 042
     Dates: start: 20190912
  2. INFLECTRA [Suspect]
     Active Substance: INFLIXIMAB-DYYB
     Dosage: 300 MG, Q (EVERY) 0, 2, WEEKS, THEN EVERY 8 WEEKS
     Route: 042
     Dates: start: 20190928
  3. INFLECTRA [Suspect]
     Active Substance: INFLIXIMAB-DYYB
     Dosage: 300 MG, Q (EVERY) 0, 2, WEEKS, THEN EVERY 8 WEEKS
     Route: 042
     Dates: start: 20191025
  4. INFLECTRA [Suspect]
     Active Substance: INFLIXIMAB-DYYB
     Dosage: 300 MG, Q (EVERY) 0, 2, WEEKS, THEN EVERY 8 WEEKS
     Route: 042
     Dates: start: 20200212
  5. INFLECTRA [Suspect]
     Active Substance: INFLIXIMAB-DYYB
     Dosage: 300 MG, Q (EVERY) 0, 2, WEEKS, THEN EVERY 8 WEEKS
     Route: 042
     Dates: start: 20200408
  6. INFLECTRA [Suspect]
     Active Substance: INFLIXIMAB-DYYB
     Dosage: 300 MG, Q (EVERY) 0, 2, WEEKS, THEN EVERY 8 WEEKS
     Route: 042
     Dates: start: 20200604
  7. INFLECTRA [Suspect]
     Active Substance: INFLIXIMAB-DYYB
     Dosage: 300 MG, Q (EVERY) 0, 2, WEEKS, THEN EVERY 8 WEEKS
     Route: 042
     Dates: start: 20200729
  8. INFLECTRA [Suspect]
     Active Substance: INFLIXIMAB-DYYB
     Dosage: 300 MG, Q (EVERY) 0, 2, WEEKS, THEN EVERY 8 WEEKS
     Route: 042
     Dates: start: 20200923
  9. INFLECTRA [Suspect]
     Active Substance: INFLIXIMAB-DYYB
     Dosage: 300 MG, Q (EVERY) 0, 2, WEEKS, THEN EVERY 8 WEEKS
     Route: 042
     Dates: start: 20201120
  10. INFLECTRA [Suspect]
     Active Substance: INFLIXIMAB-DYYB
     Dosage: 300 MG, Q (EVERY) 0, 2, WEEKS, THEN EVERY 8 WEEKS
     Route: 042
     Dates: start: 20210115
  11. INFLECTRA [Suspect]
     Active Substance: INFLIXIMAB-DYYB
     Dosage: 300 MG, Q (EVERY) 0, 2, WEEKS, THEN EVERY 8 WEEKS
     Route: 042
     Dates: start: 20210312
  12. INFLECTRA [Suspect]
     Active Substance: INFLIXIMAB-DYYB
     Dosage: 300 MG, Q (EVERY) 0, 2, WEEKS, THEN EVERY 8 WEEKS
     Route: 042
     Dates: start: 20210507
  13. INFLECTRA [Suspect]
     Active Substance: INFLIXIMAB-DYYB
     Dosage: 300 MG, Q (EVERY) 0, 2, WEEKS, THEN EVERY 8 WEEKS
     Route: 042
     Dates: start: 20210702
  14. INFLECTRA [Suspect]
     Active Substance: INFLIXIMAB-DYYB
     Dosage: 300 MG, Q (EVERY) 0, 2, WEEKS, THEN EVERY 8 WEEKS
     Route: 042
     Dates: start: 20210831
  15. INFLECTRA [Suspect]
     Active Substance: INFLIXIMAB-DYYB
     Dosage: 300 MG, Q (EVERY) 0, 2, WEEKS, THEN EVERY 8 WEEKS
     Route: 042
     Dates: start: 20211112
  16. INFLECTRA [Suspect]
     Active Substance: INFLIXIMAB-DYYB
     Dosage: 300 MG, Q (EVERY) 0, 2, WEEKS, THEN EVERY 8 WEEKS
     Route: 042
     Dates: start: 20220114
  17. INFLECTRA [Suspect]
     Active Substance: INFLIXIMAB-DYYB
     Dosage: 300 MG, Q (EVERY) 0, 2, WEEKS, THEN EVERY 8 WEEKS
     Route: 042
     Dates: start: 20220311
  18. ACETAMINOPHEN [Concomitant]
     Active Substance: ACETAMINOPHEN
     Indication: Premedication
     Dosage: 650 MG
     Dates: start: 20200729, end: 20200729
  19. DIPHENHYDRAMINE [Concomitant]
     Active Substance: DIPHENHYDRAMINE
     Indication: Premedication
     Dosage: 50 MG
     Dates: start: 20200729, end: 20200729
  20. SOLU-MEDROL [Concomitant]
     Active Substance: METHYLPREDNISOLONE SODIUM SUCCINATE
     Dosage: 1 DF, DOSAGE IS UNKNOWN
     Route: 065
     Dates: start: 20190906

REACTIONS (19)
  - Abscess intestinal [Unknown]
  - Lower respiratory tract infection [Recovering/Resolving]
  - Off label use [Unknown]
  - Intentional product use issue [Unknown]
  - Product use issue [Unknown]
  - Inappropriate schedule of product administration [Unknown]
  - Abdominal pain [Unknown]
  - Arthralgia [Unknown]
  - Blood pressure diastolic decreased [Unknown]
  - Condition aggravated [Not Recovered/Not Resolved]
  - Cough [Recovering/Resolving]
  - Fungal infection [Recovering/Resolving]
  - Heart rate decreased [Recovered/Resolved]
  - Nasopharyngitis [Unknown]
  - Nausea [Unknown]
  - Post procedural complication [Unknown]
  - Swelling face [Unknown]
  - Vertigo [Unknown]
  - Weight increased [Unknown]

NARRATIVE: CASE EVENT DATE: 20190912
